FAERS Safety Report 6343327-9 (Version None)
Quarter: 2009Q3

REPORT INFORMATION
  Report Type: 
  Country: None (occurrence: None)
  Receive Date: 20090908
  Receipt Date: 20090828
  Transmission Date: 20100115
  Serious: Yes (Hospitalization, Other)
  Sender: FDA-Public Use
  Company Number: PHHY2009JP02321

PATIENT
  Age: 51 Year
  Sex: Male

DRUGS (2)
  1. GLEEVEC [Suspect]
     Indication: GASTROINTESTINAL STROMAL TUMOUR
     Dosage: 400 MG/DAY
  2. GLEEVEC [Suspect]
     Dosage: 400 MG/DAY

REACTIONS (2)
  - FACE OEDEMA [None]
  - PANCREATICODUODENECTOMY [None]
